FAERS Safety Report 4829705-5 (Version None)
Quarter: 2005Q4

REPORT INFORMATION
  Report Type: 
  Country: None (occurrence: None)
  Receive Date: 20051116
  Receipt Date: 20050930
  Transmission Date: 20060501
  Serious: Yes (Other)
  Sender: FDA-Public Use
  Company Number: US-MERCK-0510USA01872

PATIENT
  Age: 55 Year
  Sex: Female
  Weight: 91 kg

DRUGS (7)
  1. VIOXX [Suspect]
     Indication: ARTHRALGIA
     Route: 048
     Dates: start: 20010406, end: 20011226
  2. BACLOFEN [Concomitant]
     Route: 048
  3. EFFEXOR XR [Concomitant]
     Route: 048
  4. NORVASC [Concomitant]
     Route: 048
  5. PLAQUENIL [Concomitant]
     Route: 048
  6. POTASSIUM (UNSPECIFIED) [Concomitant]
     Route: 048
  7. HYDROCHLOROTHIAZIDE AND TRIAMTERENE [Concomitant]
     Route: 048

REACTIONS (1)
  - ISCHAEMIC STROKE [None]
